FAERS Safety Report 5862807-3 (Version None)
Quarter: 2008Q3

REPORT INFORMATION
  Report Type: 
  Country: None (occurrence: None)
  Receive Date: 20080818
  Receipt Date: 20080707
  Transmission Date: 20090109
  Serious: No
  Sender: FDA-Public Use
  Company Number: WAES 0807USA01047

PATIENT
  Age: 70 Year
  Sex: Male

DRUGS (4)
  1. JANUVIA [Suspect]
     Indication: TYPE 2 DIABETES MELLITUS
     Dosage: 100 MG/DAILY/PO
     Route: 048
     Dates: start: 20080401
  2. MELOXICAM [Suspect]
     Indication: ARTHRITIS
     Dosage: PO
     Route: 048
     Dates: start: 20080401
  3. METFORMIN HCL [Concomitant]
  4. SIMVASTATIN [Concomitant]

REACTIONS (1)
  - RENAL IMPAIRMENT [None]
